FAERS Safety Report 5011585-9 (Version None)
Quarter: 2006Q2

REPORT INFORMATION
  Report Type: 
  Country: None (occurrence: None)
  Receive Date: 20060524
  Receipt Date: 20060509
  Transmission Date: 20061013
  Serious: Yes (Life-Threatening)
  Sender: FDA-Public Use
  Company Number: GXKR2006US02630

PATIENT
  Age: 27 Year
  Sex: Male

DRUGS (1)
  1. METOCLOPRAMIDE [Suspect]
     Indication: ENTERAL NUTRITION
     Dosage: 10 MG, QID, INTRAVENOUS
     Route: 042

REACTIONS (14)
  - ATRIAL FIBRILLATION [None]
  - BLOOD ALKALINE PHOSPHATASE INCREASED [None]
  - BLOOD BILIRUBIN INCREASED [None]
  - HEPATIC ENZYME INCREASED [None]
  - HYPERKALAEMIA [None]
  - METABOLIC ACIDOSIS [None]
  - MYOGLOBIN URINE PRESENT [None]
  - NEUROLEPTIC MALIGNANT SYNDROME [None]
  - PANCREATITIS [None]
  - PULMONARY OEDEMA [None]
  - PYREXIA [None]
  - RENAL FAILURE [None]
  - TACHYCARDIA [None]
  - TROPONIN INCREASED [None]
